FAERS Safety Report 8576222-5 (Version None)
Quarter: 2012Q3

REPORT INFORMATION
  Report Type: 
  Country: None (occurrence: None)
  Receive Date: 20120807
  Receipt Date: 20120731
  Transmission Date: 20120928
  Serious: Yes (Hospitalization)
  Sender: FDA-Public Use
  Company Number: FR-PFIZER INC-2012184883

PATIENT
  Age: 58 Year
  Sex: Female

DRUGS (5)
  1. FLAGYL [Suspect]
     Indication: CANDIDIASIS
     Dosage: UNK
     Route: 048
     Dates: start: 20120718, end: 20120719
  2. FLUCONAZOLE [Suspect]
     Indication: CANDIDIASIS
     Dosage: 200 MG, DAILY
     Route: 048
     Dates: start: 20120718, end: 20120719
  3. LASIX [Concomitant]
     Indication: OEDEMA PERIPHERAL
     Dosage: 40 MG, 2X/DAY
  4. CYCLOSPORINE [Concomitant]
  5. ROCEPHIN [Suspect]
     Indication: INFECTION
     Dosage: UNK
     Route: 048
     Dates: start: 20120329, end: 20120719

REACTIONS (1)
  - CONVULSION [None]
